FAERS Safety Report 9797407 (Version 2)
Quarter: 2014Q1

REPORT INFORMATION
  Report Type: Report from Study
  Country: US (occurrence: US)
  Receive Date: 20140106
  Receipt Date: 20140106
  Transmission Date: 20141002
  Serious: No
  Sender: FDA-Public Use
  Company Number: PHEH2013US014497

PATIENT
  Age: 74 Year
  Sex: Male

DRUGS (9)
  1. TASIGNA [Suspect]
     Indication: CHRONIC MYELOID LEUKAEMIA
     Dosage: 300 MG, BID
     Route: 048
     Dates: start: 20130416
  2. CLONAZEPAM [Concomitant]
  3. NORVASC [Concomitant]
  4. PANTOPRAZOLE [Concomitant]
  5. ZOCOR [Concomitant]
  6. FLOMAX [Concomitant]
  7. ZESTRIL [Concomitant]
  8. HYDROCHLOROTHIAZIDE [Concomitant]
  9. GLYCOLAX [Concomitant]

REACTIONS (3)
  - Fatigue [Unknown]
  - Dizziness [Unknown]
  - Tremor [Unknown]
